FAERS Safety Report 5078049-8 (Version None)
Quarter: 2006Q3

REPORT INFORMATION
  Report Type: 
  Country: None (occurrence: None)
  Receive Date: 20060808
  Receipt Date: 20060727
  Transmission Date: 20061208
  Serious: Yes (Other)
  Sender: FDA-Public Use
  Company Number: 227774

PATIENT
  Age: 38 Year
  Sex: Female

DRUGS (1)
  1. RAPTIVA [Suspect]
     Indication: PSORIASIS
     Dosage: 42 MG, SUBCUTANEOUS
     Route: 058
     Dates: start: 20060712, end: 20060714

REACTIONS (4)
  - ANGIONEUROTIC OEDEMA [None]
  - FLUID RETENTION [None]
  - MIGRAINE [None]
  - WEIGHT INCREASED [None]
